FAERS Safety Report 4289514-5 (Version None)
Quarter: 2004Q1

REPORT INFORMATION
  Report Type: 
  Country: None (occurrence: None)
  Receive Date: 20040113
  Receipt Date: 20030221
  Transmission Date: 20041129
  Serious: Yes (Other)
  Sender: FDA-Public Use
  Company Number: 2003007954

PATIENT
  Age: 71 Year
  Sex: Male
  Weight: 131.0895 kg

DRUGS (3)
  1. DIFLUCAN [Suspect]
     Indication: CELLULITIS
     Dosage: 200 MG (DAILY), ORAL
     Route: 048
     Dates: start: 20030205, end: 20030211
  2. GLYBURIDE [Suspect]
     Indication: ILL-DEFINED DISORDER
     Dates: end: 20030210
  3. CEFAZOLIN [Concomitant]

REACTIONS (2)
  - DRUG INTERACTION [None]
  - HYPOGLYCAEMIA [None]
